FAERS Safety Report 17114807 (Version 1)
Quarter: 2019Q4

REPORT INFORMATION
  Report Type: Spontaneous
  Country: HK (occurrence: HK)
  Receive Date: 20191205
  Receipt Date: 20191205
  Transmission Date: 20200122
  Serious: Yes (Hospitalization, Other)
  Sender: FDA-Public Use
  Company Number: HK-ASTELLAS-2019US048114

PATIENT
  Age: 55 Year
  Sex: Male

DRUGS (1)
  1. AMBISOME [Suspect]
     Active Substance: AMPHOTERICIN B
     Indication: CEREBRAL FUNGAL INFECTION
     Route: 065
     Dates: start: 201605

REACTIONS (1)
  - Drug ineffective [Recovering/Resolving]
